FAERS Safety Report 14365042 (Version 1)
Quarter: 2018Q1

REPORT INFORMATION
  Report Type: Spontaneous
  Country: US (occurrence: US)
  Receive Date: 20180108
  Receipt Date: 20180108
  Transmission Date: 20180509
  Serious: No
  Sender: FDA-Public Use
  Company Number: US-ROCHE-2009696

PATIENT
  Age: 52 Year
  Sex: Male
  Weight: 110 kg

DRUGS (2)
  1. ACTIVASE [Suspect]
     Active Substance: ALTEPLASE
     Dosage: OVER 10 HOURS.
     Route: 041
     Dates: start: 20171013
  2. ACTIVASE [Suspect]
     Active Substance: ALTEPLASE
     Indication: PULMONARY EMBOLISM
     Dosage: 2 BOLUS TOTAL ;ONGOING: NO
     Route: 040
     Dates: start: 20171013, end: 20171013

REACTIONS (3)
  - No adverse event [Unknown]
  - Intentional device use issue [Unknown]
  - Off label use [Unknown]
